FAERS Safety Report 15158645 (Version 1)
Quarter: 2018Q3

REPORT INFORMATION
  Report Type: Spontaneous
  Country: BE (occurrence: BE)
  Receive Date: 20180718
  Receipt Date: 20180718
  Transmission Date: 20181010
  Serious: Yes (Other)
  Sender: FDA-Public Use
  Company Number: BE-PFIZER INC-2018283260

PATIENT
  Sex: Female

DRUGS (1)
  1. LEDERTREXATE [Suspect]
     Active Substance: METHOTREXATE
     Dosage: 2 DF, 1X/DAY
     Route: 048

REACTIONS (3)
  - Chest pain [Unknown]
  - Palpitations [Unknown]
  - Epistaxis [Unknown]
